FAERS Safety Report 16810332 (Version 2)
Quarter: 2019Q3

REPORT INFORMATION
  Report Type: Spontaneous
  Country: US (occurrence: US)
  Receive Date: 20190916
  Receipt Date: 20190919
  Transmission Date: 20191005
  Serious: Yes (Other)
  Sender: FDA-Public Use
  Company Number: US-PFIZER INC-2019395731

PATIENT
  Sex: Female

DRUGS (1)
  1. VYNDAQEL [Suspect]
     Active Substance: TAFAMIDIS MEGLUMINE
     Dosage: 4 DF, 1X/DAY

REACTIONS (6)
  - Blood pressure diastolic increased [Unknown]
  - Diarrhoea [Unknown]
  - Flatulence [Unknown]
  - Arrhythmia [Unknown]
  - Abdominal discomfort [Unknown]
  - Headache [Unknown]
